FAERS Safety Report 6066842-4 (Version None)
Quarter: 2009Q1

REPORT INFORMATION
  Report Type: 
  Country: None (occurrence: None)
  Receive Date: 20090205
  Receipt Date: 20090123
  Transmission Date: 20090719
  Serious: Yes (Other)
  Sender: FDA-Public Use
  Company Number: US-JNJFOC-20090106635

PATIENT
  Sex: Female
  Weight: 71.67 kg

DRUGS (10)
  1. LEVAQUIN [Suspect]
     Route: 048
  2. LEVAQUIN [Suspect]
     Indication: SINUSITIS
     Route: 048
  3. GLIBERIDE [Concomitant]
     Indication: DIABETES MELLITUS
     Route: 048
  4. NORTRYPTELENE [Concomitant]
     Indication: PAIN
     Route: 065
  5. NORTRYPTELENE [Concomitant]
     Indication: SLEEP DISORDER
     Route: 065
  6. DILTIAZEM [Concomitant]
     Indication: PAIN
     Route: 065
  7. PROPOXYPHENE [Concomitant]
     Indication: PAIN
     Route: 048
  8. PENTASA [Concomitant]
     Indication: COLITIS
     Route: 048
  9. ALBUTERAL [Concomitant]
     Indication: ASTHMA
     Route: 065
  10. BULMICORT [Concomitant]
     Indication: ASTHMA
     Route: 065

REACTIONS (5)
  - AGEUSIA [None]
  - ANOSMIA [None]
  - DYSGEUSIA [None]
  - DYSPNOEA [None]
  - THROAT TIGHTNESS [None]
